FAERS Safety Report 11064496 (Version 1)
Quarter: 2015Q2

REPORT INFORMATION
  Report Type: Spontaneous
  Country: US (occurrence: US)
  Receive Date: 20150424
  Receipt Date: 20150424
  Transmission Date: 20150821
  Serious: No
  Sender: FDA-Public Use
  Company Number: US-PFIZER INC-2015135941

PATIENT
  Age: 63 Year
  Sex: Female

DRUGS (6)
  1. TORADOL [Suspect]
     Active Substance: KETOROLAC TROMETHAMINE
     Dosage: UNK
  2. ROZEREM [Suspect]
     Active Substance: RAMELTEON
     Dosage: UNK
  3. LUNESTA [Suspect]
     Active Substance: ESZOPICLONE
     Dosage: UNK
  4. SONATA [Suspect]
     Active Substance: ZALEPLON
     Dosage: UNK
  5. BEXTRA [Suspect]
     Active Substance: VALDECOXIB
     Dosage: UNK
  6. AMBIEN CR [Suspect]
     Active Substance: ZOLPIDEM TARTRATE
     Dosage: UNK

REACTIONS (1)
  - Drug ineffective [Unknown]
